FAERS Safety Report 6439939-4 (Version None)
Quarter: 2009Q4

REPORT INFORMATION
  Report Type: 
  Country: None (occurrence: None)
  Receive Date: 20091113
  Receipt Date: 20091102
  Transmission Date: 20100525
  Serious: Yes (Disabling, Other)
  Sender: FDA-Public Use
  Company Number: US-JNJFOC-20091103240

PATIENT
  Age: 49 Year
  Sex: Female
  Weight: 72.12 kg

DRUGS (6)
  1. FLEXERIL [Suspect]
     Indication: MUSCLE STRAIN
     Dosage: 1/2 TABLET, 3 TIMES A DAY
     Route: 048
  2. SKELAXIN [Suspect]
     Indication: DRUG HYPERSENSITIVITY
     Route: 049
  3. KETOROLAC TROMETHAMINE [Suspect]
     Indication: DRUG USE FOR UNKNOWN INDICATION
  4. PROMETHAZINE [Concomitant]
  5. PROMETHAZINE [Concomitant]
  6. ALL OTHER NON-THERAPEUTIC PRODUCTS [Concomitant]

REACTIONS (5)
  - DRUG HYPERSENSITIVITY [None]
  - DRUG INEFFECTIVE [None]
  - GAIT DISTURBANCE [None]
  - MUSCLE SPASMS [None]
  - PAIN [None]
